FAERS Safety Report 11005602 (Version 1)
Quarter: 2015Q2

REPORT INFORMATION
  Report Type: Spontaneous
  Country: US (occurrence: US)
  Receive Date: 20150409
  Receipt Date: 20150409
  Transmission Date: 20150821
  Serious: No
  Sender: FDA-Public Use
  Company Number: US-ALLERGAN-1413477US

PATIENT
  Age: 82 Year
  Sex: Female

DRUGS (17)
  1. PREMARIN [Concomitant]
     Active Substance: ESTROGENS, CONJUGATED
     Dosage: 1 PILL 25 DAYS OUT OF MONTH, 0 ON THE REST OF 5 DAYS
  2. LUMIGAN [Suspect]
     Active Substance: BIMATOPROST
     Indication: GLAUCOMA
     Dosage: 2 GTT, QHS
     Route: 047
     Dates: start: 20140408, end: 20140714
  3. GLYBURIDE. [Concomitant]
     Active Substance: GLYBURIDE
     Indication: DIABETES MELLITUS
     Dosage: 2.5 MG, BID
     Route: 048
  4. CALTRATE PLUS-D [Concomitant]
     Dosage: UNK UNK, QD
  5. METOPROLOL SUCC CT [Concomitant]
     Dosage: 100 MG, BID
     Route: 048
  6. METAMUCIL [Concomitant]
     Active Substance: PLANTAGO SEED
     Dosage: 1 TABLESPOON, BID
  7. LUMIGAN [Suspect]
     Active Substance: BIMATOPROST
     Dosage: 2 GTT, QHS
     Route: 047
     Dates: start: 20140408
  8. COUMADIN [Concomitant]
     Active Substance: WARFARIN SODIUM
     Dosage: 2 MG, ON MONDAY
  9. ZETIA [Concomitant]
     Active Substance: EZETIMIBE
     Dosage: 10 MG, QD
  10. KLOR-CON [Concomitant]
     Active Substance: POTASSIUM CHLORIDE
     Dosage: 20 MEQ, QD
  11. FUROSEMIDE. [Concomitant]
     Active Substance: FUROSEMIDE
     Dosage: 40 MG, BID
     Route: 048
  12. PREVACID [Concomitant]
     Active Substance: LANSOPRAZOLE
     Dosage: 15 MG, QD
  13. FISH OIL [Concomitant]
     Active Substance: FISH OIL
     Dosage: 1200 MG, BID
     Route: 048
  14. LOVASTATIN. [Concomitant]
     Active Substance: LOVASTATIN
     Dosage: 20 MG, QD
  15. CENTRUM SILVER [Concomitant]
     Active Substance: VITAMINS
     Dosage: UNK UNK, QD
  16. COUMADIN [Concomitant]
     Active Substance: WARFARIN SODIUM
     Dosage: 1 MG, ALL DAYS EXCEPT MONDAY
  17. NORVASC [Concomitant]
     Active Substance: AMLODIPINE BESYLATE
     Dosage: 5 MG, QD

REACTIONS (24)
  - Malaise [Recovering/Resolving]
  - Fatigue [Recovering/Resolving]
  - Headache [Recovering/Resolving]
  - Oropharyngeal pain [Recovered/Resolved]
  - Cough [Recovering/Resolving]
  - Pyrexia [Recovered/Resolved]
  - Eye pain [Recovering/Resolving]
  - Feeling abnormal [Recovering/Resolving]
  - Insomnia [Recovering/Resolving]
  - Glycosylated haemoglobin increased [Unknown]
  - Nasopharyngitis [Recovered/Resolved]
  - Asthenopia [Recovering/Resolving]
  - Blood glucose increased [Not Recovered/Not Resolved]
  - Upper respiratory tract infection [Recovering/Resolving]
  - Chest pain [Recovering/Resolving]
  - Orthopnoea [Recovering/Resolving]
  - Decreased appetite [Recovering/Resolving]
  - Sleep disorder [Recovering/Resolving]
  - Asthenia [Recovering/Resolving]
  - Eye irritation [Recovering/Resolving]
  - Instillation site pain [Recovering/Resolving]
  - Secretion discharge [Recovering/Resolving]
  - Rhinorrhoea [Not Recovered/Not Resolved]
  - Nausea [Recovering/Resolving]

NARRATIVE: CASE EVENT DATE: 20140408
